FAERS Safety Report 5738131-6 (Version None)
Quarter: 2008Q2

REPORT INFORMATION
  Report Type: 
  Country: None (occurrence: None)
  Receive Date: 20080514
  Receipt Date: 20080505
  Transmission Date: 20081010
  Serious: Yes (Other)
  Sender: FDA-Public Use
  Company Number: US-PFIZER INC-2008033010

PATIENT
  Sex: Female
  Weight: 93.2 kg

DRUGS (4)
  1. CHANTIX [Suspect]
     Indication: SMOKING CESSATION THERAPY
     Route: 048
  2. CHANTIX [Suspect]
     Indication: TOBACCO ABUSE
  3. CENTRUM [Concomitant]
  4. CALCIUM [Concomitant]

REACTIONS (10)
  - BALANCE DISORDER [None]
  - CSF CELL COUNT [None]
  - CSF PROTEIN [None]
  - DEMYELINATION [None]
  - DIZZINESS [None]
  - FALL [None]
  - GAIT DISTURBANCE [None]
  - HYPERTENSION [None]
  - POSITIVE ROMBERGISM [None]
  - SINUS DISORDER [None]
